FAERS Safety Report 7989635-7 (Version None)
Quarter: 2011Q4

REPORT INFORMATION
  Report Type: 
  Country: None (occurrence: None)
  Receive Date: 20111215
  Receipt Date: 20111202
  Transmission Date: 20120403
  Serious: Yes (Hospitalization)
  Sender: FDA-Public Use
  Company Number: IPC201112-003238

PATIENT
  Age: 77 Year
  Sex: Female
  Weight: 90.7194 kg

DRUGS (9)
  1. CADUET [Concomitant]
  2. ADVAIR DISKUS 100/50 [Concomitant]
  3. AMBIEN [Concomitant]
  4. COMBIVENT [Concomitant]
  5. AMITRIPTYLINE HCL [Concomitant]
  6. FUROSEMIDE [Suspect]
     Indication: PULMONARY OEDEMA
     Dosage: 40 MG TABLET ONCE A DAY
  7. POTASSIUM [Concomitant]
  8. PROTONIX [Concomitant]
  9. SYNTHROID [Concomitant]

REACTIONS (3)
  - DRUG INEFFECTIVE [None]
  - CARDIAC FAILURE CONGESTIVE [None]
  - PULMONARY OEDEMA [None]
